FAERS Safety Report 4608436-0 (Version None)
Quarter: 2005Q1

REPORT INFORMATION
  Report Type: 
  Country: None (occurrence: None)
  Receive Date: 20050310
  Receipt Date: 20050302
  Transmission Date: 20050727
  Serious: Yes (Life-Threatening, Other)
  Sender: FDA-Public Use
  Company Number: 2005-00768

PATIENT
  Age: 76 Year
  Sex: Male
  Weight: 65 kg

DRUGS (5)
  1. TRAMADOL HYDROCHLORIDE (WATSON LABORATORIES) (TRAMADOL HYDROCHLORIDE) [Suspect]
     Indication: POST PROCEDURAL PAIN
     Dosage: SEE IMAGE
     Route: 042
     Dates: start: 20050101
  2. TRAMADOL HYDROCHLORIDE (WATSON LABORATORIES) (TRAMADOL HYDROCHLORIDE) [Suspect]
     Indication: POST PROCEDURAL PAIN
     Dosage: SEE IMAGE
     Route: 042
     Dates: start: 20050101
  3. HEPARIN [Concomitant]
  4. ONDANSETRON HCL [Concomitant]
  5. ANTIBIOTICS [Concomitant]

REACTIONS (3)
  - MEDICATION ERROR [None]
  - OVERDOSE [None]
  - VOCAL CORD DISORDER [None]
